FAERS Safety Report 16154797 (Version 7)
Quarter: 2020Q2

REPORT INFORMATION
  Report Type: Report from Study
  Country: None (occurrence: US)
  Receive Date: 20190403
  Receipt Date: 20200611
  Transmission Date: 20200713
  Serious: Yes (Life-Threatening, Hospitalization)
  Sender: FDA-Public Use
  Company Number: US-ABBVIE-19P-163-2704996-00

PATIENT
  Age: 51 Year
  Sex: Female
  Weight: 75.9 kg

DRUGS (16)
  1. VENETOCLAX. [Suspect]
     Active Substance: VENETOCLAX
     Route: 048
     Dates: start: 20190206, end: 20190219
  2. ABT-263 [Suspect]
     Active Substance: NAVITOCLAX
     Indication: ACUTE LYMPHOCYTIC LEUKAEMIA RECURRENT
     Route: 048
     Dates: start: 20190207, end: 20190219
  3. VINCRISTINE [Suspect]
     Active Substance: VINCRISTINE
     Dosage: DAYS 9, 15, 22, 29
     Route: 042
     Dates: start: 20190306, end: 20190306
  4. PEGASPARAGINASE [Suspect]
     Active Substance: PEGASPARGASE
     Indication: ACUTE LYMPHOCYTIC LEUKAEMIA RECURRENT
     Dosage: DAY 9 AND DAY 22
     Route: 042
     Dates: start: 20190213, end: 20190213
  5. VINCRISTINE [Suspect]
     Active Substance: VINCRISTINE
     Indication: ACUTE LYMPHOCYTIC LEUKAEMIA RECURRENT
     Dosage: DAYS 9, 15, 22, 29
     Route: 042
     Dates: start: 20190213, end: 20190213
  6. VENETOCLAX. [Suspect]
     Active Substance: VENETOCLAX
     Route: 048
     Dates: start: 20190626, end: 20190723
  7. VENETOCLAX. [Suspect]
     Active Substance: VENETOCLAX
     Indication: ACUTE LYMPHOCYTIC LEUKAEMIA RECURRENT
     Route: 048
     Dates: start: 20190205, end: 20190205
  8. VENETOCLAX. [Suspect]
     Active Substance: VENETOCLAX
     Route: 048
     Dates: start: 20190221, end: 20190312
  9. DEXAMETHASONE. [Suspect]
     Active Substance: DEXAMETHASONE
     Indication: ACUTE LYMPHOCYTIC LEUKAEMIA RECURRENT
     Dosage: DAYS 9  13 AND DAYS 22  26
     Route: 048
     Dates: start: 20190213, end: 20190217
  10. VINCRISTINE [Suspect]
     Active Substance: VINCRISTINE
     Dosage: DAYS 9, 15, 22, 29
     Route: 042
     Dates: start: 20190227, end: 20190227
  11. OXYCODONE [Concomitant]
     Active Substance: OXYCODONE
     Indication: ABDOMINAL PAIN UPPER
     Route: 048
     Dates: start: 20190219
  12. ABT-263 [Suspect]
     Active Substance: NAVITOCLAX
     Route: 048
     Dates: start: 20190221, end: 20190312
  13. VENETOCLAX. [Suspect]
     Active Substance: VENETOCLAX
     Route: 048
     Dates: start: 20190617, end: 20190626
  14. DEXAMETHASONE. [Suspect]
     Active Substance: DEXAMETHASONE
     Dosage: DAYS 9  13 AND DAYS 22  26
     Route: 048
     Dates: start: 20190227, end: 20190306
  15. DEXAMETHASONE. [Suspect]
     Active Substance: DEXAMETHASONE
     Route: 048
     Dates: start: 20190313, end: 20190313
  16. DEXAMETHASONE. [Suspect]
     Active Substance: DEXAMETHASONE
     Route: 048
     Dates: start: 20190612, end: 20190625

REACTIONS (6)
  - Pancytopenia [Recovered/Resolved]
  - Hepatic steatosis [Not Recovered/Not Resolved]
  - Chronic hepatitis [Not Recovered/Not Resolved]
  - Ascites [Recovered/Resolved]
  - Sepsis [Recovered/Resolved]
  - Respiratory distress [Recovered/Resolved]

NARRATIVE: CASE EVENT DATE: 20190313
